FAERS Safety Report 6317667-3 (Version None)
Quarter: 2009Q3

REPORT INFORMATION
  Report Type: 
  Country: None (occurrence: None)
  Receive Date: 20090821
  Receipt Date: 20090811
  Transmission Date: 20100115
  Serious: Yes (Other)
  Sender: FDA-Public Use
  Company Number: PHHY2008MX07263

PATIENT
  Age: 76 Year
  Sex: Female

DRUGS (1)
  1. DIOVAN [Suspect]
     Indication: HYPERTENSION
     Dosage: 1 DF (160 MG) PER DAY
     Route: 048
     Dates: start: 19970801

REACTIONS (6)
  - ABASIA [None]
  - CONTUSION [None]
  - HEAD INJURY [None]
  - MOBILITY DECREASED [None]
  - OEDEMA [None]
  - ROAD TRAFFIC ACCIDENT [None]
